FAERS Safety Report 7565243-7 (Version None)
Quarter: 2011Q2

REPORT INFORMATION
  Report Type: 
  Country: None (occurrence: None)
  Receive Date: 20110622
  Receipt Date: 20110615
  Transmission Date: 20111010
  Serious: Yes (Hospitalization, Other)
  Sender: FDA-Public Use
  Company Number: US-RB-026826-11

PATIENT
  Age: 26 Year
  Sex: Female

DRUGS (2)
  1. SUBOXONE [Suspect]
     Indication: DRUG DEPENDENCE
     Dosage: SUBLINGUAL FILM
     Route: 060
     Dates: start: 20110422
  2. SOMA [Suspect]
     Indication: DRUG ABUSE
     Dosage: DOSAGE INFORMATION UNKNOWN
     Route: 048
     Dates: start: 20110501, end: 20110501

REACTIONS (5)
  - LOSS OF CONSCIOUSNESS [None]
  - DRUG ABUSE [None]
  - OVERDOSE [None]
  - DYSPNOEA [None]
  - NASOPHARYNGITIS [None]
